FAERS Safety Report 18334578 (Version 2)
Quarter: 2020Q4

REPORT INFORMATION
  Report Type: Report from Study
  Country: None (occurrence: FI)
  Receive Date: 20201001
  Receipt Date: 20201024
  Transmission Date: 20210113
  Serious: Yes (Death, Disabling)
  Sender: FDA-Public Use
  Company Number: FI-ABBVIE-20K-055-3588433-00

PATIENT
  Sex: Male
  Weight: 45 kg

DRUGS (3)
  1. DUODOPA [Suspect]
     Active Substance: CARBIDOPA\LEVODOPA
     Dosage: MAYBE 1.7 ML AND 1.3 ML, 24 H TREATMENT, NO BOLUS DOSE?20 MG/ML 5 MG/ML
     Route: 050
  2. PANADOL [Concomitant]
     Active Substance: ACETAMINOPHEN
     Indication: PAIN
  3. DUODOPA [Suspect]
     Active Substance: CARBIDOPA\LEVODOPA
     Indication: PARKINSON^S DISEASE
     Dosage: START DATE TEXT: AROUND 4 YEARS AGO?20 MG/ML 5 MG/ML
     Route: 050
     Dates: start: 2016

REACTIONS (12)
  - Mobility decreased [Unknown]
  - Wrong technique in product usage process [Unknown]
  - Hypophagia [Unknown]
  - Pain [Unknown]
  - Device occlusion [Unknown]
  - Weight decreased [Not Recovered/Not Resolved]
  - Fall [Unknown]
  - Gastrointestinal tract irritation [Unknown]
  - Hypersomnia [Unknown]
  - Parkinson^s disease [Fatal]
  - Diarrhoea [Not Recovered/Not Resolved]
  - Device breakage [Unknown]

NARRATIVE: CASE EVENT DATE: 2018
